FAERS Safety Report 16669766 (Version 1)
Quarter: 2019Q3

REPORT INFORMATION
  Report Type: Spontaneous
  Country: US (occurrence: US)
  Receive Date: 20190805
  Receipt Date: 20190805
  Transmission Date: 20191004
  Serious: Yes (Hospitalization)
  Sender: FDA-Public Use
  Company Number: US-FRESENIUS MEDICAL CARE RENAL THERAPIES GROUP-FMC-1907-000926

PATIENT
  Sex: Male
  Weight: 119 kg

DRUGS (1)
  1. DELFLEX [Suspect]
     Active Substance: CALCIUM CHLORIDE\DEXTROSE\MAGNESIUM CHLORIDE\SODIUM CHLORIDE\SODIUM LACTATE
     Indication: END STAGE RENAL DISEASE
     Dosage: 7 EXCHANGES, FILL VOLUME OF 2000ML, DWELL TIME OF 2HR 15MIN AND A LAST FILL VOLUME OF 1500 CC
     Route: 033
     Dates: start: 20181024

REACTIONS (1)
  - Peritonitis bacterial [Recovering/Resolving]
